FAERS Safety Report 6201485-0 (Version None)
Quarter: 2009Q2

REPORT INFORMATION
  Report Type: 
  Country: None (occurrence: None)
  Receive Date: 20090520
  Receipt Date: 20090506
  Transmission Date: 20091009
  Serious: Yes (Other)
  Sender: FDA-Public Use
  Company Number: US-GDP-09405910

PATIENT
  Age: 72 Year
  Sex: Female

DRUGS (2)
  1. ORACEA [Suspect]
     Indication: OFF LABEL USE
     Dosage: 40 MG QD ORAL
     Route: 048
     Dates: start: 20090401, end: 20090501
  2. ORACEA [Suspect]
     Indication: ROSACEA
     Dosage: 40 MG QD ORAL
     Route: 048
     Dates: start: 20090401, end: 20090501

REACTIONS (1)
  - CLOSTRIDIUM DIFFICILE COLITIS [None]
